FAERS Safety Report 5962047-3 (Version None)
Quarter: 2008Q4

REPORT INFORMATION
  Report Type: 
  Country: None (occurrence: None)
  Receive Date: 20081121
  Receipt Date: 20081112
  Transmission Date: 20090506
  Serious: Yes (Other)
  Sender: FDA-Public Use
  Company Number: PHBS2008AU06358

PATIENT
  Sex: Female

DRUGS (6)
  1. HYDRALAZINE HCL [Suspect]
  2. OXPRENOLOL [Suspect]
  3. CALTRATE [Concomitant]
  4. EPOGEN [Concomitant]
  5. FOLATE SODIUM [Concomitant]
  6. IRON [Concomitant]

REACTIONS (3)
  - DRUG EXPOSURE DURING PREGNANCY [None]
  - PREMATURE BABY [None]
  - RETINOPATHY [None]
